FAERS Safety Report 14038709 (Version 3)
Quarter: 2017Q4

REPORT INFORMATION
  Report Type: Spontaneous
  Country: CH (occurrence: CH)
  Receive Date: 20171004
  Receipt Date: 20171109
  Transmission Date: 20180321
  Serious: Yes (Other)
  Sender: FDA-Public Use
  Company Number: CH-AMGEN-CHESP2017146444

PATIENT
  Age: 5 Year
  Sex: Female
  Weight: 16 kg

DRUGS (16)
  1. ARANESP [Suspect]
     Active Substance: DARBEPOETIN ALFA
     Dosage: 20 -30, EVERY SEVEN DAY
     Route: 042
  2. CLEXANE [Concomitant]
     Active Substance: ENOXAPARIN SODIUM
     Indication: PROPHYLAXIS
     Dosage: 15 MUG, (EVERY 24 HOUR)
     Route: 058
     Dates: start: 2017
  3. ARANESP [Suspect]
     Active Substance: DARBEPOETIN ALFA
     Indication: DIALYSIS
     Dosage: 0.6 MUG/KG, UNK
     Route: 065
     Dates: start: 20170630
  4. ARANESP [Suspect]
     Active Substance: DARBEPOETIN ALFA
     Dosage: 1.17 MUG/KG, UNK
     Route: 065
     Dates: start: 20170829
  5. VENOFER [Concomitant]
     Active Substance: IRON SUCROSE
     Dosage: 50 MG, UNK
     Route: 042
     Dates: start: 20170721
  6. EUTHYROX [Concomitant]
     Active Substance: LEVOTHYROXINE SODIUM
     Indication: HYPOTHYROIDISM
     Dosage: 50 MUG, (EVERY 24 HOUR)
     Dates: start: 20170120, end: 20170920
  7. ARANESP [Suspect]
     Active Substance: DARBEPOETIN ALFA
     Dosage: 1.17 MUG/KG, UNK
     Route: 065
     Dates: start: 20170818
  8. MODAMIDE [Concomitant]
     Active Substance: AMILORIDE HYDROCHLORIDE
     Indication: OEDEMA
     Dosage: 1.25 MG, (EVERY 24 HOUR)
     Dates: start: 20170621, end: 20170823
  9. FUROSEMID [Concomitant]
     Active Substance: FUROSEMIDE
     Indication: OEDEMA
     Dosage: 10 MG, (EVERY 24 HOUR)
     Dates: start: 20140621, end: 20170823
  10. FUROSEMID [Concomitant]
     Active Substance: FUROSEMIDE
     Indication: HYPERKALAEMIA
  11. ARANESP [Suspect]
     Active Substance: DARBEPOETIN ALFA
     Dosage: 20 MUG, UNK
     Route: 065
     Dates: start: 20170908
  12. ARANESP [Suspect]
     Active Substance: DARBEPOETIN ALFA
     Dosage: 1.17 MUG/KG, UNK
     Route: 065
     Dates: start: 20170920
  13. ARANESP [Suspect]
     Active Substance: DARBEPOETIN ALFA
     Dosage: 1.17 MUG/KG, UNK
     Route: 065
     Dates: start: 20170811
  14. CANDESARTAN. [Suspect]
     Active Substance: CANDESARTAN
     Indication: PROTEINURIA
     Dosage: 2 MG, (EVERY 24 HOUR)
     Route: 065
     Dates: start: 20170120, end: 20170920
  15. ARANESP [Suspect]
     Active Substance: DARBEPOETIN ALFA
     Indication: NEPHROGENIC ANAEMIA
     Dosage: 0.9 MUG/KG, UNK
     Route: 065
     Dates: start: 20170721
  16. ALBUMIN [Concomitant]
     Active Substance: ALBUMIN HUMAN
     Indication: OEDEMA
     Dosage: 15 G, (1-3 X WEEK)
     Dates: start: 201611, end: 20170823

REACTIONS (3)
  - Nephrogenic anaemia [Unknown]
  - Drug effect incomplete [Unknown]
  - Aplasia pure red cell [Unknown]

NARRATIVE: CASE EVENT DATE: 20170926
